FAERS Safety Report 6779313-4 (Version None)
Quarter: 2010Q2

REPORT INFORMATION
  Report Type: 
  Country: None (occurrence: None)
  Receive Date: 20100618
  Receipt Date: 20100607
  Transmission Date: 20101027
  Serious: Yes (Hospitalization)
  Sender: FDA-Public Use
  Company Number: PHHY2010DE28047

PATIENT
  Sex: Female
  Weight: 86 kg

DRUGS (9)
  1. ALISKIREN ALI+ [Suspect]
     Indication: HYPERTENSION
     Dosage: 300 MG/D
     Route: 048
     Dates: start: 20081027
  2. METOHEXAL [Concomitant]
     Dosage: 190 MG/D
     Route: 048
     Dates: start: 20050101
  3. ORAL ANTIDIABETICS [Concomitant]
     Indication: DIABETES MELLITUS
  4. ACE INHIBITOR NOS [Concomitant]
  5. AMLODIPINE [Concomitant]
     Indication: HYPERTENSION
     Dosage: 5 MG/D
     Route: 048
     Dates: start: 20050101
  6. TORSEMIDE [Concomitant]
     Indication: HYPERTENSION
     Dosage: 10 MG/D
     Route: 048
     Dates: start: 20090402
  7. MOXONIDINE [Concomitant]
     Indication: HYPERTENSION
     Dosage: 0.4 MG/D
     Route: 048
     Dates: start: 20070901
  8. RAMIPRIL [Concomitant]
     Indication: HYPERTENSION
     Dosage: ONE TABLET DAILY (QD)
     Dates: start: 20020101
  9. METFORMIN HCL [Concomitant]
     Indication: DIABETES MELLITUS
     Dosage: 0.5 DF, BID
     Route: 048
     Dates: start: 20040101

REACTIONS (3)
  - CHEST PAIN [None]
  - CORONARY ARTERY DISEASE [None]
  - HYPERTENSION [None]
